FAERS Safety Report 8689371 (Version 2)
Quarter: 2013Q3

REPORT INFORMATION
  Report Type: Spontaneous
  Country: US (occurrence: US)
  Receive Date: 20120727
  Receipt Date: 20130709
  Transmission Date: 20140515
  Serious: No
  Sender: FDA-Public Use
  Company Number: US-ASTRAZENECA-2012SE01150

PATIENT
  Age: 721 Month
  Sex: Female

DRUGS (8)
  1. SEROQUEL XR [Suspect]
     Indication: SLEEP DISORDER
     Route: 048
     Dates: start: 2010
  2. SEROQUEL XR [Suspect]
     Indication: HALLUCINATION
     Route: 048
     Dates: start: 2010
  3. SEROQUEL XR [Suspect]
     Indication: SLEEP DISORDER
     Route: 048
  4. SEROQUEL XR [Suspect]
     Indication: HALLUCINATION
     Route: 048
  5. LISINOPRIL HCTZ [Suspect]
     Dosage: 10-12.5 DAILY
     Route: 048
  6. AMITRIPTYLINE [Suspect]
     Indication: HEADACHE
     Route: 065
  7. TYLENOL PM [Suspect]
     Dosage: THREE 50 MG PILLS
     Route: 065
  8. CELEXA [Concomitant]
     Indication: DEPRESSION

REACTIONS (21)
  - Adverse event [Unknown]
  - Headache [Unknown]
  - Middle insomnia [Unknown]
  - Malaise [Unknown]
  - Insomnia [Unknown]
  - Headache [Unknown]
  - Tachyphrenia [Unknown]
  - Sleep disorder [Unknown]
  - Feeling abnormal [Unknown]
  - Crying [Unknown]
  - Emotional disorder [Unknown]
  - Thinking abnormal [Unknown]
  - Feeling abnormal [Unknown]
  - Fatigue [Unknown]
  - Fatigue [Unknown]
  - Hypersomnia [Unknown]
  - Drug ineffective for unapproved indication [Unknown]
  - Hallucination [Unknown]
  - Off label use [Unknown]
  - Intentional drug misuse [Unknown]
  - Drug dose omission [Unknown]
